FAERS Safety Report 8037194-5 (Version None)
Quarter: 2012Q1

REPORT INFORMATION
  Report Type: 
  Country: None (occurrence: None)
  Receive Date: 20120111
  Receipt Date: 20120103
  Transmission Date: 20120608
  Serious: Yes (Other)
  Sender: FDA-Public Use
  Company Number: US-ASTRAZENECA-2012SE00728

PATIENT
  Sex: Female

DRUGS (3)
  1. PRILOSEC OTC [Suspect]
     Route: 048
  2. PRILOSEC [Concomitant]
  3. PROTONIX [Concomitant]
     Indication: HIATUS HERNIA

REACTIONS (3)
  - VITREOUS PROLAPSE [None]
  - ACCIDENTAL EXPOSURE [None]
  - VISUAL ACUITY REDUCED [None]
